FAERS Safety Report 7880139-9 (Version None)
Quarter: 2011Q4

REPORT INFORMATION
  Report Type: 
  Country: None (occurrence: None)
  Receive Date: 20111101
  Receipt Date: 20111025
  Transmission Date: 20120403
  Serious: Yes (Death, Hospitalization)
  Sender: FDA-Public Use
  Company Number: US-CELGENEUS-163-21880-11073299

PATIENT
  Sex: Female

DRUGS (7)
  1. DECADRON [Concomitant]
     Dosage: 40 MILLIGRAM
     Route: 065
     Dates: start: 20110601, end: 20110825
  2. PRILOSEC [Concomitant]
     Dosage: 20 MILLIGRAM
     Route: 065
     Dates: end: 20110825
  3. LOPRESSOR [Concomitant]
     Indication: HYPERTENSION
     Dosage: 50 MILLIGRAM
     Route: 065
     Dates: end: 20110825
  4. LIPITOR [Concomitant]
     Dosage: 40 MILLIGRAM
     Route: 065
     Dates: end: 20110825
  5. REVLIMID [Suspect]
     Dosage: 5 MILLIGRAM
     Route: 048
     Dates: start: 20110708
  6. VELCADE [Concomitant]
     Indication: MULTIPLE MYELOMA
     Dosage: 2.2 MILLIGRAM
     Route: 065
     Dates: start: 20110503, end: 20110805
  7. DIOVAN [Interacting]
     Indication: HYPERTENSION
     Dosage: 80 MILLIGRAM
     Route: 065
     Dates: start: 20110601, end: 20110825

REACTIONS (3)
  - RENAL FAILURE [None]
  - ABDOMINAL PAIN UPPER [None]
  - ABASIA [None]
